FAERS Safety Report 5133476-5 (Version None)
Quarter: 2006Q4

REPORT INFORMATION
  Report Type: 
  Country: None (occurrence: None)
  Receive Date: 20061024
  Receipt Date: 20060809
  Transmission Date: 20070319
  Serious: No
  Sender: FDA-Public Use
  Company Number: US-BRISTOL-MYERS SQUIBB COMPANY-13470182

PATIENT
  Age: 40 Year
  Sex: Female
  Weight: 63 kg

DRUGS (1)
  1. TRIMOX [Suspect]
     Indication: SINUSITIS

REACTIONS (3)
  - HYPERHIDROSIS [None]
  - SOMNOLENCE [None]
  - VOMITING [None]
